FAERS Safety Report 23267575 (Version 3)
Quarter: 2023Q4

REPORT INFORMATION
  Report Type: Spontaneous
  Country: TR (occurrence: TR)
  Receive Date: 20231206
  Receipt Date: 20231218
  Transmission Date: 20240110
  Serious: Yes (Other)
  Sender: FDA-Public Use
  Company Number: TR-PFIZER INC-PV202300193024

PATIENT
  Age: 67 Year
  Sex: Female

DRUGS (9)
  1. FLUCONAZOLE [Interacting]
     Active Substance: FLUCONAZOLE
     Indication: Antifungal prophylaxis
     Dosage: 200 MG, DAILY
  2. FLUCONAZOLE [Interacting]
     Active Substance: FLUCONAZOLE
     Dosage: 400 MG, DAILY
  3. TRETINOIN [Interacting]
     Active Substance: TRETINOIN
     Indication: Acute promyelocytic leukaemia
     Dosage: 45 MG/M2, DAILY
  4. IDARUBICIN [Concomitant]
     Active Substance: IDARUBICIN
     Indication: Acute promyelocytic leukaemia
     Dosage: 12 MG/M2/DAY
  5. IDARUBICIN [Concomitant]
     Active Substance: IDARUBICIN
     Dosage: 5 MG/M2
  6. MITOXANTRONE [Concomitant]
     Active Substance: MITOXANTRONE HYDROCHLORIDE
     Indication: Acute promyelocytic leukaemia
     Dosage: 10 MG/M2, DAILY (10 MG/M2/DAY FOR 3 DAYS)
  7. CHOLECALCIFEROL [Concomitant]
     Active Substance: CHOLECALCIFEROL
     Indication: Hypocalcaemia
     Dosage: 20000 IU, WEEKLY
  8. CALCITRIOL [Concomitant]
     Active Substance: CALCITRIOL
     Indication: Hypocalcaemia
     Dosage: 0.5 UG, DAILY
  9. CALCIUM CARBONATE [Concomitant]
     Active Substance: CALCIUM CARBONATE
     Indication: Hypocalcaemia
     Dosage: 5000 MG

REACTIONS (2)
  - Drug interaction [Recovered/Resolved]
  - Hypercalcaemia [Recovered/Resolved]
